FAERS Safety Report 4917209-0 (Version None)
Quarter: 2006Q1

REPORT INFORMATION
  Report Type: 
  Country: None (occurrence: None)
  Receive Date: 20060221
  Receipt Date: 20060217
  Transmission Date: 20060701
  Serious: Yes (Other)
  Sender: FDA-Public Use
  Company Number: US-GLAXOSMITHKLINE-A0594360A

PATIENT
  Age: 59 Year
  Sex: Male

DRUGS (2)
  1. NICODERM CQ [Suspect]
     Dosage: 21MG UNKNOWN
     Route: 062
     Dates: start: 20060216
  2. NICODERM CQ [Suspect]
     Dosage: 14MG UNKNOWN
     Route: 062
     Dates: start: 20060217

REACTIONS (8)
  - CYANOSIS [None]
  - DYSPNOEA [None]
  - INSOMNIA [None]
  - MALAISE [None]
  - MEDICATION ERROR [None]
  - NAUSEA [None]
  - TACHYPNOEA [None]
  - YELLOW SKIN [None]
